FAERS Safety Report 8222135-8 (Version None)
Quarter: 2012Q1

REPORT INFORMATION
  Report Type: 
  Country: None (occurrence: None)
  Receive Date: 20120320
  Receipt Date: 20120312
  Transmission Date: 20120608
  Serious: Yes (Hospitalization, Disabling)
  Sender: FDA-Public Use
  Company Number: US-MERCK-1112USA01777

PATIENT
  Age: 67 Year
  Sex: Female
  Weight: 58 kg

DRUGS (8)
  1. FOSAMAX [Suspect]
     Route: 048
     Dates: start: 20090518, end: 20091223
  2. FOSAMAX [Suspect]
     Indication: OSTEOPENIA
     Route: 048
     Dates: start: 19980101, end: 20080316
  3. FOSAMAX [Suspect]
     Indication: OSTEOPOROSIS
     Route: 048
     Dates: start: 19980101, end: 20080316
  4. MULTI-VITAMINS [Concomitant]
     Route: 048
  5. FOSAMAX [Suspect]
     Route: 048
     Dates: start: 20080317, end: 20090517
  6. CALTRATE + D [Concomitant]
     Route: 048
  7. FOSAMAX [Suspect]
     Route: 048
     Dates: start: 20090518, end: 20091223
  8. FOSAMAX [Suspect]
     Route: 048
     Dates: start: 20080317, end: 20090101

REACTIONS (15)
  - GASTRITIS [None]
  - LOW TURNOVER OSTEOPATHY [None]
  - DIVERTICULUM [None]
  - JOINT DISLOCATION [None]
  - PRESYNCOPE [None]
  - HAEMORRHOIDS [None]
  - LABYRINTHITIS [None]
  - ORTHOSTATIC HYPOTENSION [None]
  - FEMUR FRACTURE [None]
  - HYPERTENSION [None]
  - ARRHYTHMIA [None]
  - FALL [None]
  - IMPAIRED HEALING [None]
  - MACULAR DEGENERATION [None]
  - HAND FRACTURE [None]
